FAERS Safety Report 12978782 (Version 3)
Quarter: 2016Q4

REPORT INFORMATION
  Report Type: Other
  Country: US (occurrence: US)
  Receive Date: 20161128
  Receipt Date: 20161226
  Transmission Date: 20170207
  Serious: Yes (Death, Hospitalization, Other)
  Sender: FDA-Public Use
  Company Number: US-ACORDA-ACO_130633_2016

PATIENT
  Age: 58 Year
  Sex: Male
  Weight: 90.7 kg

DRUGS (12)
  1. AMPYRA [Suspect]
     Active Substance: DALFAMPRIDINE
     Indication: MULTIPLE SCLEROSIS
     Dosage: 10 MG, BID
     Route: 048
     Dates: start: 20150407
  2. SIMVASTATIN. [Concomitant]
     Active Substance: SIMVASTATIN
     Indication: PRODUCT USED FOR UNKNOWN INDICATION
     Dosage: 400 MG, QD
     Route: 048
  3. TECFIDERA [Concomitant]
     Active Substance: DIMETHYL FUMARATE
     Indication: PRODUCT USED FOR UNKNOWN INDICATION
     Dosage: 240 MG, BID
     Route: 048
     Dates: start: 20160714
  4. CYMBALTA [Concomitant]
     Active Substance: DULOXETINE HYDROCHLORIDE
     Indication: PRODUCT USED FOR UNKNOWN INDICATION
     Dosage: 60 MG, QD
     Route: 048
     Dates: start: 20160510
  5. ALEVE [Concomitant]
     Active Substance: NAPROXEN SODIUM
     Indication: PRODUCT USED FOR UNKNOWN INDICATION
     Dosage: 220 MG, PRN
     Route: 048
  6. TYLENOL WITH CODEINE [Concomitant]
     Active Substance: ACETAMINOPHEN\CODEINE PHOSPHATE
     Indication: PRODUCT USED FOR UNKNOWN INDICATION
     Dosage: 300-30 MG, TWO TIMES DAILY AS NEEDED
     Route: 048
  7. TIZANIDINE. [Suspect]
     Active Substance: TIZANIDINE
     Indication: PRODUCT USED FOR UNKNOWN INDICATION
     Dosage: UNK, PRN
     Route: 048
  8. DULOXETINE. [Concomitant]
     Active Substance: DULOXETINE
     Indication: PRODUCT USED FOR UNKNOWN INDICATION
  9. CALCIUM-PHOSPHORUS-VITAMIN D [Concomitant]
     Indication: PRODUCT USED FOR UNKNOWN INDICATION
     Dosage: 1 DF, QD
     Route: 048
  10. FIBER [Concomitant]
     Active Substance: PSYLLIUM HUSK
     Indication: PRODUCT USED FOR UNKNOWN INDICATION
     Dosage: UNK, PRN
     Route: 048
  11. CENTRUM SILVER [Concomitant]
     Active Substance: MINERALS\VITAMINS
     Indication: PRODUCT USED FOR UNKNOWN INDICATION
     Dosage: UNK, QD
     Route: 048
  12. FISH OIL [Concomitant]
     Active Substance: FISH OIL
     Indication: PRODUCT USED FOR UNKNOWN INDICATION
     Dosage: 1 DAILY
     Route: 065

REACTIONS (28)
  - Acute respiratory failure [Unknown]
  - Decreased appetite [Unknown]
  - Vitamin B12 increased [Unknown]
  - Cognitive disorder [Unknown]
  - Speech disorder [Unknown]
  - Agitation [Unknown]
  - Hepatic steatosis [Unknown]
  - Platelet count decreased [Unknown]
  - Gait spastic [Unknown]
  - Somnolence [Unknown]
  - Balance disorder [Unknown]
  - Pancreatic carcinoma [Fatal]
  - Heart rate abnormal [Unknown]
  - Vertigo [Unknown]
  - Walking aid user [Unknown]
  - Clumsiness [Unknown]
  - Pupils unequal [Unknown]
  - Cholelithiasis [Unknown]
  - Mental status changes [Unknown]
  - White matter lesion [Unknown]
  - Malaise [Unknown]
  - Lymphadenopathy [Unknown]
  - Fatigue [Unknown]
  - Sepsis [Unknown]
  - Hyperhidrosis [Unknown]
  - Cold sweat [Unknown]
  - Cerebral atrophy [Unknown]
  - Asthenia [Unknown]

NARRATIVE: CASE EVENT DATE: 2016
